FAERS Safety Report 11793490 (Version 1)
Quarter: 2015Q4

REPORT INFORMATION
  Report Type: Spontaneous
  Country: US (occurrence: None)
  Receive Date: 20151201
  Receipt Date: 20151201
  Transmission Date: 20160305
  Serious: Yes (Hospitalization)
  Sender: FDA-Public Use
  Company Number: None

PATIENT
  Age: 64 Year
  Sex: Male
  Weight: 73 kg

DRUGS (14)
  1. AMLODIPINE [Concomitant]
     Active Substance: AMLODIPINE BESYLATE
  2. CALCIUM ACETATE. [Concomitant]
     Active Substance: CALCIUM ACETATE
  3. TACROLIMUS. [Concomitant]
     Active Substance: TACROLIMUS
  4. MYFORTIC [Concomitant]
     Active Substance: MYCOPHENOLATE SODIUM
  5. RIBAVIRIN. [Suspect]
     Active Substance: RIBAVIRIN
     Indication: HEPATITIS C
     Route: 048
     Dates: start: 20140926, end: 20150313
  6. GABAPENTIN. [Concomitant]
     Active Substance: GABAPENTIN
  7. LEVETIRACETAM. [Concomitant]
     Active Substance: LEVETIRACETAM
  8. ALPRAZOLAM. [Concomitant]
     Active Substance: ALPRAZOLAM
  9. SOVALDI [Suspect]
     Active Substance: SOFOSBUVIR
     Indication: HEPATITIS C
     Route: 048
     Dates: start: 20140926, end: 20150313
  10. MEGESTROL [Concomitant]
     Active Substance: MEGESTROL
  11. XIFAXAN [Concomitant]
     Active Substance: RIFAXIMIN
  12. TRAXODONE [Concomitant]
  13. WARFARIN [Concomitant]
     Active Substance: WARFARIN
  14. LACTULOSE. [Concomitant]
     Active Substance: LACTULOSE

REACTIONS (1)
  - Pneumonia [None]

NARRATIVE: CASE EVENT DATE: 20141127
